FAERS Safety Report 9909104 (Version 3)
Quarter: 2014Q2

REPORT INFORMATION
  Report Type: Spontaneous
  Country: IT (occurrence: IT)
  Receive Date: 20140219
  Receipt Date: 20140424
  Transmission Date: 20141212
  Serious: Yes (Hospitalization)
  Sender: FDA-Public Use
  Company Number: IT-UCBSA-113003

PATIENT
  Age: 80 Year
  Sex: Male

DRUGS (8)
  1. KEPPRA [Suspect]
     Indication: EPILEPSY
     Dosage: DOSE STRENGTH: 500MG
     Route: 048
     Dates: start: 20130225, end: 20130326
  2. AZATHIOPRINE [Suspect]
     Indication: COLITIS
     Route: 048
     Dates: start: 20130201, end: 20130328
  3. GLYCERYL TRINITRATE [Concomitant]
     Indication: MYOCARDIAL ISCHAEMIA
     Route: 062
  4. FUROSEMIDE [Concomitant]
     Indication: HYPERTENSION
     Route: 048
  5. TAMSULOSIN HYDROCHLORIDE [Concomitant]
     Indication: BENIGN PROSTATIC HYPERPLASIA
     Route: 048
  6. OMEPRAZOLE [Concomitant]
     Indication: PROPHYLAXIS AGAINST GASTROINTESTINAL ULCER
     Route: 048
  7. CARDIOASPIRIN [Concomitant]
     Indication: MYOCARDIAL ISCHAEMIA
     Route: 048
  8. PENTACOL [Concomitant]
     Indication: COLITIS
     Dosage: 800MG MODIFIED RELEASE GASTRORESISTANT TABLETS
     Route: 048

REACTIONS (6)
  - Diarrhoea [Recovering/Resolving]
  - Drug eruption [Recovering/Resolving]
  - Vomiting [Recovering/Resolving]
  - Decreased appetite [Recovering/Resolving]
  - Pyrexia [Unknown]
  - Anaemia [Unknown]
